FAERS Safety Report 5252216-2 (Version None)
Quarter: 2007Q1

REPORT INFORMATION
  Report Type: 
  Country: None (occurrence: None)
  Receive Date: 20070301
  Receipt Date: 20070222
  Transmission Date: 20070707
  Serious: Yes (Other)
  Sender: FDA-Public Use
  Company Number: BR-JNJFOC-20070205472

PATIENT
  Age: 41 Year
  Sex: Female
  Weight: 53 kg

DRUGS (3)
  1. ORTHO EVRA [Suspect]
     Indication: CONTRACEPTION
     Route: 062
     Dates: start: 20060101
  2. DILACORON [Concomitant]
     Indication: TACHYCARDIA
  3. OMEPRAZOLE [Concomitant]
     Indication: GASTRITIS
     Dates: start: 20070201

REACTIONS (2)
  - HEPATITIS [None]
  - MENOMETRORRHAGIA [None]
